FAERS Safety Report 8066958-7 (Version None)
Quarter: 2012Q1

REPORT INFORMATION
  Report Type: 
  Country: None (occurrence: None)
  Receive Date: 20120124
  Receipt Date: 20120113
  Transmission Date: 20120608
  Serious: Yes (Hospitalization)
  Sender: FDA-Public Use
  Company Number: US-MERCK-1111USA00642

PATIENT
  Age: 65 Year
  Sex: Female
  Weight: 71 kg

DRUGS (7)
  1. FOSAMAX [Suspect]
     Indication: OSTEOPOROSIS
     Route: 048
     Dates: start: 19991001, end: 20090201
  2. FOSAMAX [Suspect]
     Route: 048
     Dates: start: 19980501
  3. FOSAMAX [Suspect]
     Route: 048
     Dates: end: 20021214
  4. FOSAMAX [Suspect]
     Route: 048
     Dates: start: 20030226
  5. EVISTA [Concomitant]
     Indication: OSTEOPOROSIS
     Route: 065
     Dates: start: 19980101, end: 20060101
  6. FOSAMAX [Suspect]
     Route: 048
     Dates: start: 20060601
  7. ALENDRONATE SODIUM [Suspect]
     Indication: OSTEOPOROSIS
     Route: 065
     Dates: start: 20090201, end: 20091101

REACTIONS (31)
  - ANAEMIA [None]
  - CHILLS [None]
  - BLOOD CHOLESTEROL INCREASED [None]
  - OSTEOPENIA [None]
  - OSTEOMALACIA [None]
  - CORONARY ARTERY DISEASE [None]
  - HAEMORRHOIDS [None]
  - HYPERPARATHYROIDISM [None]
  - ABDOMINAL DISCOMFORT [None]
  - TOOTHACHE [None]
  - LIGAMENT SPRAIN [None]
  - PYREXIA [None]
  - COUGH [None]
  - LEUKOCYTOSIS [None]
  - HYPERLIPIDAEMIA [None]
  - FEMUR FRACTURE [None]
  - LOW TURNOVER OSTEOPATHY [None]
  - LARYNGITIS [None]
  - HYPERTENSION [None]
  - ABDOMINAL PAIN UPPER [None]
  - HYPOTHYROIDISM [None]
  - TOOTH FRACTURE [None]
  - GASTROOESOPHAGEAL REFLUX DISEASE [None]
  - DIVERTICULUM [None]
  - OROPHARYNGEAL PAIN [None]
  - ENDOCARDITIS BACTERIAL [None]
  - FALL [None]
  - TOOTH ABSCESS [None]
  - COLONIC POLYP [None]
  - HYPERCALCAEMIA [None]
  - OSTEOARTHRITIS [None]
